FAERS Safety Report 6285850-1 (Version None)
Quarter: 2009Q3

REPORT INFORMATION
  Report Type: 
  Country: None (occurrence: None)
  Receive Date: 20090724
  Receipt Date: 20090714
  Transmission Date: 20100115
  Serious: Yes (Other)
  Sender: FDA-Public Use
  Company Number: GXKR2009JP07993

PATIENT
  Age: 48 Year
  Sex: Male

DRUGS (5)
  1. AMINOPHYLLINE [Suspect]
     Dosage: 250 MG, INTRAVENOUS
     Route: 042
  2. PROPOFOL [Concomitant]
  3. SUCCINYLCHOLINE CHLORIDE [Concomitant]
  4. THIAMYLAL (THIAMYLAL) [Concomitant]
  5. ECT (ELECTRO CONVULSIVE THERAPY) (NO INGREDIENTS/SUBSTANCES) [Concomitant]

REACTIONS (2)
  - HYPERTENSION [None]
  - TACHYCARDIA [None]
